FAERS Safety Report 6160453-8 (Version None)
Quarter: 2009Q2

REPORT INFORMATION
  Report Type: 
  Country: None (occurrence: None)
  Receive Date: 20090415
  Receipt Date: 20090415
  Transmission Date: 20091009
  Serious: Yes (Death)
  Sender: FDA-Public Use
  Company Number: None

PATIENT
  Sex: Female
  Weight: 54.1 kg

DRUGS (4)
  1. TEMOZOLOMIDE [Suspect]
     Indication: ACUTE MYELOID LEUKAEMIA
  2. ACYCLOVIR [Concomitant]
  3. VORICONAZOLE [Concomitant]
  4. LISINOPRIL [Concomitant]

REACTIONS (3)
  - BLOOD BLISTER [None]
  - RESPIRATORY RATE INCREASED [None]
  - STRESS [None]
